FAERS Safety Report 5590765-8 (Version None)
Quarter: 2008Q1

REPORT INFORMATION
  Report Type: 
  Country: None (occurrence: None)
  Receive Date: 20080114
  Receipt Date: 20080107
  Transmission Date: 20080703
  Serious: Yes (Hospitalization, Other)
  Sender: FDA-Public Use
  Company Number: US-PFIZER INC-2008001760

PATIENT
  Age: 60 Year
  Sex: Female
  Weight: 108.9 kg

DRUGS (10)
  1. ZOLOFT [Suspect]
     Route: 048
  2. HYDROCHLOROTHIAZIDE [Concomitant]
     Indication: BLOOD PRESSURE
  3. LEVOXYL [Concomitant]
     Indication: THYROID DISORDER
  4. XANAX [Concomitant]
  5. LYRICA [Concomitant]
  6. POTASSIUM [Concomitant]
  7. LIPITOR [Concomitant]
     Indication: BLOOD CHOLESTEROL
  8. NEXIUM [Concomitant]
  9. HYDROCODONE [Concomitant]
     Indication: PAIN
  10. AROMASIN [Concomitant]
     Indication: BREAST CANCER

REACTIONS (5)
  - CONVULSION [None]
  - DEPRESSION [None]
  - DRUG WITHDRAWAL SYNDROME [None]
  - THINKING ABNORMAL [None]
  - THYROID DISORDER [None]
